FAERS Safety Report 9995298 (Version 1)
Quarter: 2014Q1

REPORT INFORMATION
  Report Type: Spontaneous
  Country: US (occurrence: None)
  Receive Date: 20140214
  Receipt Date: 20140214
  Transmission Date: 20141002
  Serious: No
  Sender: FDA-Public Use
  Company Number: US-013922

PATIENT
  Sex: Female

DRUGS (1)
  1. PICO-SALAX (NOT SPECIFIED) [Suspect]
     Indication: BOWEL PREPARATION
     Dates: start: 20131021

REACTIONS (2)
  - Hypoglycaemia [None]
  - Dizziness [None]
